FAERS Safety Report 16972607 (Version 1)
Quarter: 2019Q4

REPORT INFORMATION
  Report Type: Spontaneous
  Country: FR (occurrence: FR)
  Receive Date: 20191030
  Receipt Date: 20191030
  Transmission Date: 20200122
  Serious: Yes (Hospitalization, Other)
  Sender: FDA-Public Use
  Company Number: FR-AMGEN-FRASP2019164833

PATIENT
  Age: 68 Year
  Sex: Female
  Weight: 45 kg

DRUGS (7)
  1. EXJADE [Suspect]
     Active Substance: DEFERASIROX
     Indication: PRIMARY MYELOFIBROSIS
     Dosage: 360 MILLIGRAM, QOD
     Route: 048
     Dates: start: 2015
  2. CETIRIZINE [Suspect]
     Active Substance: CETIRIZINE HYDROCHLORIDE
     Indication: PRODUCT USED FOR UNKNOWN INDICATION
     Dosage: 10 MILLIGRAM, QD
     Route: 048
  3. SERETIDE [Suspect]
     Active Substance: FLUTICASONE PROPIONATE\SALMETEROL XINAFOATE
     Indication: CHRONIC OBSTRUCTIVE PULMONARY DISEASE
     Dosage: UNK UNK, QD
     Route: 055
  4. JAKAVI [Suspect]
     Active Substance: RUXOLITINIB
     Indication: PRIMARY MYELOFIBROSIS
     Dosage: 15 MILLIGRAM, QD
     Route: 048
     Dates: start: 2015
  5. TIOTROPIUM [Suspect]
     Active Substance: TIOTROPIUM
     Indication: CHRONIC OBSTRUCTIVE PULMONARY DISEASE
     Dosage: UNK UNK, QD
     Route: 055
     Dates: end: 20190901
  6. ARANESP [Suspect]
     Active Substance: DARBEPOETIN ALFA
     Indication: PRIMARY MYELOFIBROSIS
     Dosage: 500 MICROGRAM, Q3WK
     Route: 058
     Dates: start: 2015
  7. ZELITREX [Suspect]
     Active Substance: VALACYCLOVIR HYDROCHLORIDE
     Indication: PROPHYLAXIS
     Dosage: 500 MILLIGRAM, QD
     Route: 048
     Dates: start: 2015

REACTIONS (3)
  - Ischaemic stroke [Recovering/Resolving]
  - Fungal endocarditis [Recovering/Resolving]
  - Infective aneurysm [Recovering/Resolving]

NARRATIVE: CASE EVENT DATE: 201909
